FAERS Safety Report 10491227 (Version 1)
Quarter: 2014Q4

REPORT INFORMATION
  Report Type: Spontaneous
  Country: US (occurrence: US)
  Receive Date: 20141002
  Receipt Date: 20141002
  Transmission Date: 20150528
  Serious: No
  Sender: FDA-Public Use
  Company Number: US-GLAXOSMITHKLINE-A1049669A

PATIENT
  Sex: Female

DRUGS (11)
  1. ADVAIR HFA [Suspect]
     Active Substance: FLUTICASONE PROPIONATE\SALMETEROL XINAFOATE
     Indication: CHRONIC OBSTRUCTIVE PULMONARY DISEASE
     Route: 055
     Dates: end: 20131112
  2. FUROSEMIDE. [Concomitant]
     Active Substance: FUROSEMIDE
  3. GLIPIZIDE. [Concomitant]
     Active Substance: GLIPIZIDE
  4. KLOR-CON [Concomitant]
     Active Substance: POTASSIUM CHLORIDE
  5. LISINOPRIL. [Concomitant]
     Active Substance: LISINOPRIL
  6. OXYCONE HYDROCHLORIDE [Concomitant]
  7. SPIRIVA [Concomitant]
     Active Substance: TIOTROPIUM BROMIDE MONOHYDRATE
  8. CRESTOR [Concomitant]
     Active Substance: ROSUVASTATIN CALCIUM
  9. APIXABAN [Concomitant]
     Active Substance: APIXABAN
  10. VENTOLIN HFA [Concomitant]
     Active Substance: ALBUTEROL SULFATE
  11. LANSOPRAZOLE. [Concomitant]
     Active Substance: LANSOPRAZOLE

REACTIONS (11)
  - Headache [Unknown]
  - Hypertension [Unknown]
  - Burning sensation [Unknown]
  - Hyperaesthesia [Unknown]
  - Bone pain [Unknown]
  - Hyperglycaemia [Unknown]
  - Insomnia [Unknown]
  - Myalgia [Unknown]
  - Osteoporosis [Unknown]
  - Fatigue [Unknown]
  - Peripheral swelling [Unknown]
